FAERS Safety Report 21818992 (Version 10)
Quarter: 2025Q2

REPORT INFORMATION
  Report Type: Report from Study
  Country: CA (occurrence: CA)
  Receive Date: 20230104
  Receipt Date: 20250523
  Transmission Date: 20250717
  Serious: Yes (Hospitalization, Other)
  Sender: TAKEDA
  Company Number: CA-TAKEDA-2023TUS000652

PATIENT
  Sex: Male

DRUGS (27)
  1. VEDOLIZUMAB [Suspect]
     Active Substance: VEDOLIZUMAB
     Indication: Colitis ulcerative
  2. VEDOLIZUMAB [Suspect]
     Active Substance: VEDOLIZUMAB
  3. VEDOLIZUMAB [Suspect]
     Active Substance: VEDOLIZUMAB
  4. VEDOLIZUMAB [Suspect]
     Active Substance: VEDOLIZUMAB
  5. VEDOLIZUMAB [Suspect]
     Active Substance: VEDOLIZUMAB
  6. VEDOLIZUMAB [Suspect]
     Active Substance: VEDOLIZUMAB
  7. VEDOLIZUMAB [Suspect]
     Active Substance: VEDOLIZUMAB
  8. VEDOLIZUMAB [Suspect]
     Active Substance: VEDOLIZUMAB
  9. PREDNISONE [Concomitant]
     Active Substance: PREDNISONE
  10. CLOPIDOGREL [Concomitant]
     Active Substance: CLOPIDOGREL BISULFATE
  11. ASPIRIN [Concomitant]
     Active Substance: ASPIRIN
  12. SPIRONOLACTONE [Concomitant]
     Active Substance: SPIRONOLACTONE
  13. FUROSEMIDE [Concomitant]
     Active Substance: FUROSEMIDE
  14. JARDIANCE [Concomitant]
     Active Substance: EMPAGLIFLOZIN
  15. FERROUS FUMARATE [Concomitant]
     Active Substance: FERROUS FUMARATE
  16. ROSUVASTATIN [Concomitant]
     Active Substance: ROSUVASTATIN
  17. METOPROLOL [Concomitant]
     Active Substance: METOPROLOL
  18. APIXABAN [Concomitant]
     Active Substance: APIXABAN
  19. BREO ELLIPTA [Concomitant]
     Active Substance: FLUTICASONE FUROATE\VILANTEROL TRIFENATATE
  20. BRICANYL [Concomitant]
     Active Substance: TERBUTALINE SULFATE
  21. SPIRIVA [Concomitant]
     Active Substance: TIOTROPIUM BROMIDE MONOHYDRATE
  22. METHIMAZOLE [Concomitant]
     Active Substance: METHIMAZOLE
  23. RAMIPRIL [Concomitant]
     Active Substance: RAMIPRIL
  24. PREGABALIN [Concomitant]
     Active Substance: PREGABALIN
  25. BILASTINE [Concomitant]
     Active Substance: BILASTINE
  26. BISOPROLOL [Concomitant]
     Active Substance: BISOPROLOL
  27. ALLEGRA [Concomitant]
     Active Substance: FEXOFENADINE HYDROCHLORIDE

REACTIONS (6)
  - Transient ischaemic attack [Recovering/Resolving]
  - Renal failure [Recovering/Resolving]
  - Diabetic foot infection [Not Recovered/Not Resolved]
  - Heart rate increased [Not Recovered/Not Resolved]
  - Limb injury [Recovering/Resolving]
  - Blood pressure increased [Unknown]
